FAERS Safety Report 6095402-4 (Version None)
Quarter: 2009Q1

REPORT INFORMATION
  Report Type: 
  Country: None (occurrence: None)
  Receive Date: 20090227
  Receipt Date: 20080325
  Transmission Date: 20090719
  Serious: No
  Sender: FDA-Public Use
  Company Number: A0717346A

PATIENT
  Age: 41 Year
  Sex: Male

DRUGS (3)
  1. LAMICTAL [Suspect]
     Indication: BIPOLAR DISORDER
     Dosage: 25MG PER DAY
     Route: 048
     Dates: start: 20080304
  2. ATRIPLA [Concomitant]
  3. AMBIEN [Concomitant]

REACTIONS (1)
  - DYSGEUSIA [None]
